FAERS Safety Report 4536427-7 (Version None)
Quarter: 2004Q4

REPORT INFORMATION
  Report Type: 
  Country: None (occurrence: None)
  Receive Date: 20041223
  Receipt Date: 20041008
  Transmission Date: 20050328
  Serious: No
  Sender: FDA-Public Use
  Company Number: US-GLAXOSMITHKLINE-A0529119A

PATIENT
  Sex: Female

DRUGS (2)
  1. FLONASE [Suspect]
     Route: 045
  2. CHLOR-TRIMETON [Concomitant]

REACTIONS (1)
  - SKIN DISCOLOURATION [None]
